FAERS Safety Report 6080157-X (Version None)
Quarter: 2009Q1

REPORT INFORMATION
  Report Type: 
  Country: None (occurrence: None)
  Receive Date: 20090217
  Receipt Date: 20090211
  Transmission Date: 20090719
  Serious: Yes (Death, Hospitalization, Other)
  Sender: FDA-Public Use
  Company Number: US-CELGENEUS-163-21880-09011514

PATIENT
  Age: 64 Year
  Sex: Female

DRUGS (19)
  1. REVLIMID [Suspect]
     Route: 048
     Dates: start: 20081217, end: 20090104
  2. REVLIMID [Suspect]
     Route: 048
  3. VORCONIZOLE [Concomitant]
     Indication: DRUG USE FOR UNKNOWN INDICATION
     Route: 065
     Dates: start: 20090101
  4. NOVOLIN R [Concomitant]
     Indication: DRUG USE FOR UNKNOWN INDICATION
     Route: 058
     Dates: start: 20090108
  5. ATIVAN [Concomitant]
     Indication: DRUG USE FOR UNKNOWN INDICATION
     Route: 065
  6. ONDANSETRON/ NACL [Concomitant]
     Indication: NAUSEA
     Route: 050
     Dates: start: 20090104
  7. ONDANSETRON/ NACL [Concomitant]
     Indication: VOMITING
     Route: 050
     Dates: start: 20090104
  8. MORPHINE/ NACL [Concomitant]
     Indication: PAIN
     Route: 051
     Dates: start: 20090104
  9. NALOXONE [Concomitant]
     Indication: DRUG USE FOR UNKNOWN INDICATION
     Route: 051
     Dates: start: 20090109
  10. SODIUM BICARBONATE POWDER [Concomitant]
     Indication: DRUG USE FOR UNKNOWN INDICATION
     Route: 065
     Dates: start: 20090104
  11. SODIUM CHLORIDE [Concomitant]
     Indication: DRUG USE FOR UNKNOWN INDICATION
     Route: 045
     Dates: start: 20090109
  12. REFRESH [Concomitant]
     Indication: DRUG USE FOR UNKNOWN INDICATION
     Route: 047
     Dates: start: 20090107
  13. DIPHENOXYLATE HCL W/ ATROPINE SULFATE [Concomitant]
     Route: 048
     Dates: start: 20090104, end: 20090111
  14. DEXTROMETHORPHAN-GUAIFENESIN [Concomitant]
     Indication: COUGH
     Route: 048
     Dates: start: 20090104, end: 20090111
  15. SENNOSIDES-DOCUSATE SODIUM [Concomitant]
     Indication: CONSTIPATION
     Dosage: 1-2 TABLETS
     Route: 048
     Dates: start: 20090104, end: 20090111
  16. HALDOL [Concomitant]
     Indication: AGITATION
     Route: 065
     Dates: start: 20090112, end: 20090112
  17. LISINOPRIL [Concomitant]
     Indication: DRUG USE FOR UNKNOWN INDICATION
     Route: 065
     Dates: start: 20090112, end: 20090112
  18. FENTANYL [Concomitant]
     Indication: PAIN
     Dosage: 25-50 MCG
     Route: 065
  19. HYDROCORTISONE [Concomitant]
     Route: 065
     Dates: start: 20090112, end: 20090112

REACTIONS (2)
  - MULTI-ORGAN FAILURE [None]
  - PNEUMONIA [None]
